FAERS Safety Report 16805559 (Version 2)
Quarter: 2019Q4

REPORT INFORMATION
  Report Type: Report from Study
  Country: JP (occurrence: JP)
  Receive Date: 20190913
  Receipt Date: 20191101
  Transmission Date: 20200122
  Serious: Yes (Other)
  Sender: FDA-Public Use
  Company Number: JP-ASTRAZENECA-2019SF30622

PATIENT
  Age: 702 Month
  Sex: Female

DRUGS (6)
  1. BIPRESSO (QUETIAPINE FUMARATE) [Suspect]
     Active Substance: QUETIAPINE FUMARATE
     Indication: BIPOLAR DISORDER
     Route: 048
     Dates: start: 20190401, end: 20190404
  2. OLANZAPINE. [Concomitant]
     Active Substance: OLANZAPINE
     Route: 048
  3. ARIPIPRAZOLE. [Concomitant]
     Active Substance: ARIPIPRAZOLE
     Route: 048
  4. BIPRESSO (QUETIAPINE FUMARATE) [Suspect]
     Active Substance: QUETIAPINE FUMARATE
     Indication: BIPOLAR DISORDER
     Route: 048
     Dates: start: 20190405, end: 20190506
  5. LITHIUM CARBONATE. [Concomitant]
     Active Substance: LITHIUM CARBONATE
     Route: 048
     Dates: end: 20190401
  6. SODIUM VALPROATE [Concomitant]
     Active Substance: VALPROATE SODIUM
     Route: 048
     Dates: start: 20190401

REACTIONS (1)
  - Bipolar disorder [Recovering/Resolving]

NARRATIVE: CASE EVENT DATE: 20190402
